FAERS Safety Report 7576935-8 (Version None)
Quarter: 2011Q2

REPORT INFORMATION
  Report Type: 
  Country: None (occurrence: None)
  Receive Date: 20110628
  Receipt Date: 20110622
  Transmission Date: 20111010
  Serious: Yes (Hospitalization, Disabling, Other)
  Sender: FDA-Public Use
  Company Number: US-PFIZER INC-2010083002

PATIENT
  Sex: Female

DRUGS (1)
  1. CHANTIX [Suspect]
     Indication: SMOKING CESSATION THERAPY
     Dosage: STARTER PACK
     Dates: start: 20080406, end: 20080414

REACTIONS (5)
  - SUICIDAL IDEATION [None]
  - DEPRESSION [None]
  - ANGER [None]
  - ANXIETY [None]
  - SUICIDE ATTEMPT [None]
